FAERS Safety Report 7584004-6 (Version None)
Quarter: 2011Q2

REPORT INFORMATION
  Report Type: 
  Country: None (occurrence: None)
  Receive Date: 20110623
  Receipt Date: 20110613
  Transmission Date: 20111010
  Serious: Yes (Hospitalization, Other)
  Sender: FDA-Public Use
  Company Number: 2010AC000035

PATIENT
  Age: 80 Year
  Sex: Female

DRUGS (38)
  1. HEPARIN [Concomitant]
  2. INDOMETHACIN [Concomitant]
  3. CEPHALEXIN [Concomitant]
  4. LANAZOLID [Concomitant]
  5. CARDIZEM [Concomitant]
  6. BUSPAR [Concomitant]
  7. PULMICORT [Concomitant]
  8. ZOSYN [Concomitant]
  9. LOPRESSOR [Concomitant]
  10. PHENYTOIN [Concomitant]
  11. EFFEXOR [Concomitant]
  12. POTASSIUM CHLORIDE [Concomitant]
  13. NITRO-DUR [Concomitant]
  14. TAZIA [Concomitant]
  15. DILTIAZEM [Concomitant]
  16. PROTONIX [Concomitant]
  17. ASPIRIN [Concomitant]
  18. FOLIC ACID [Concomitant]
  19. KAYEXALATE [Concomitant]
  20. LOPRESSOR [Concomitant]
  21. NITRO TD [Concomitant]
  22. NITROGLYN 2% OINTMENT [Concomitant]
  23. LORTAB [Concomitant]
  24. DIGOXIN [Suspect]
     Indication: CORONARY ARTERY DISEASE
     Dosage: 0.25 MG;QD;PO
     Route: 048
     Dates: start: 19990115, end: 20031101
  25. PRILOSEC [Concomitant]
  26. CLONIDINE [Concomitant]
  27. OXYBUTYNIN [Concomitant]
  28. EPHEDRA [Concomitant]
  29. FOLATE [Concomitant]
  30. MINITRAN [Concomitant]
  31. LEVAQUIN [Concomitant]
  32. AMPICILLIN SODIUM [Concomitant]
  33. DIGOXIN [Suspect]
     Indication: CORONARY ARTERY DISEASE
     Dosage: 0.125 MG;QD;PO
     Route: 048
     Dates: start: 20031210, end: 20080513
  34. DETROL LA [Concomitant]
  35. LISINOPRIL [Concomitant]
  36. MAGNESIUM OXIDE [Concomitant]
  37. CELEBREX [Concomitant]
  38. GENTAMYCIN SULFATE [Concomitant]

REACTIONS (25)
  - DISORIENTATION [None]
  - UNRESPONSIVE TO STIMULI [None]
  - BRADYCARDIA [None]
  - BLOOD POTASSIUM INCREASED [None]
  - ECONOMIC PROBLEM [None]
  - HEMIPARESIS [None]
  - POSTICTAL PARALYSIS [None]
  - CAROTID ARTERY STENOSIS [None]
  - NAUSEA [None]
  - PYREXIA [None]
  - BLOOD PRESSURE INCREASED [None]
  - INTESTINAL ISCHAEMIA [None]
  - URINARY TRACT INFECTION [None]
  - ABDOMINAL DISTENSION [None]
  - BACK PAIN [None]
  - AGITATION [None]
  - CONVULSION [None]
  - ABDOMINAL PAIN [None]
  - HYPOTENSION [None]
  - DEMENTIA [None]
  - CARDIOACTIVE DRUG LEVEL DECREASED [None]
  - EMOTIONAL DISORDER [None]
  - URINE OUTPUT DECREASED [None]
  - FALL [None]
  - PAIN [None]
